FAERS Safety Report 26178741 (Version 2)
Quarter: 2025Q4

REPORT INFORMATION
  Report Type: Report from Study
  Country: EU (occurrence: EU)
  Receive Date: 20251219
  Receipt Date: 20251223
  Transmission Date: 20260118
  Serious: Yes (Other)
  Sender: TAKEDA
  Company Number: EU-TAKEDA-2025TUS016679

PATIENT
  Sex: Male

DRUGS (5)
  1. IDURSULFASE [Suspect]
     Active Substance: IDURSULFASE
     Indication: Mucopolysaccharidosis II
     Dosage: UNK UNK, 1/WEEK
     Dates: start: 202208
  2. IDURSULFASE [Suspect]
     Active Substance: IDURSULFASE
     Dosage: UNK UNK, 1/WEEK
  3. IDURSULFASE [Suspect]
     Active Substance: IDURSULFASE
     Dosage: UNK UNK, 1/WEEK
  4. IDURSULFASE [Suspect]
     Active Substance: IDURSULFASE
     Dosage: UNK UNK, 1/WEEK
  5. IDURSULFASE [Suspect]
     Active Substance: IDURSULFASE
     Dosage: UNK

REACTIONS (11)
  - Anaphylactic shock [Not Recovered/Not Resolved]
  - Device related infection [Unknown]
  - Product dose omission issue [Not Recovered/Not Resolved]
  - Influenza [Not Recovered/Not Resolved]
  - Sputum retention [Recovered/Resolved]
  - Infusion site rash [Not Recovered/Not Resolved]
  - Poor venous access [Unknown]
  - Erythema [Not Recovered/Not Resolved]
  - Skin injury [Not Recovered/Not Resolved]
  - Dermatitis [Unknown]
  - Circumstance or information capable of leading to medication error [Unknown]

NARRATIVE: CASE EVENT DATE: 20250211
